FAERS Safety Report 6840014-5 (Version None)
Quarter: 2010Q3

REPORT INFORMATION
  Report Type: 
  Country: None (occurrence: None)
  Receive Date: 20100713
  Receipt Date: 20100713
  Transmission Date: 20110219
  Serious: No
  Sender: FDA-Public Use
  Company Number: None

PATIENT

DRUGS (2)
  1. PRIVIGEN [Suspect]
     Dosage: 60GM, 80GM, 35GM DAILY IV
     Route: 042
     Dates: start: 20100709, end: 20100712
  2. PRIVIGEN [Suspect]

REACTIONS (1)
  - PRODUCT CONTAMINATION PHYSICAL [None]
